FAERS Safety Report 21535918 (Version 1)
Quarter: 2022Q4

REPORT INFORMATION
  Report Type: Spontaneous
  Country: DE (occurrence: DE)
  Receive Date: 20221101
  Receipt Date: 20221101
  Transmission Date: 20230112
  Serious: Yes (Other)
  Sender: FDA-Public Use
  Company Number: None

PATIENT
  Age: 37 Year
  Sex: Female
  Weight: 49 kg

DRUGS (1)
  1. CYTOTEC [Suspect]
     Active Substance: MISOPROSTOL
     Indication: Uterine dilation and curettage
     Dosage: 2 VAGINAL TABLETS
     Route: 067
     Dates: start: 20221019, end: 20221019

REACTIONS (8)
  - Circulatory collapse [Unknown]
  - Syncope [Unknown]
  - Uterine pain [Not Recovered/Not Resolved]
  - Chills [Unknown]
  - Nausea [Unknown]
  - Uterine spasm [Not Recovered/Not Resolved]
  - Off label use [Unknown]
  - Off label use [Unknown]

NARRATIVE: CASE EVENT DATE: 20221019
